FAERS Safety Report 20704430 (Version 1)
Quarter: 2022Q2

REPORT INFORMATION
  Report Type: Spontaneous
  Country: JP (occurrence: JP)
  Receive Date: 20220413
  Receipt Date: 20220413
  Transmission Date: 20220721
  Serious: No
  Sender: FDA-Public Use
  Company Number: JP-LUPIN PHARMACEUTICALS INC.-2022-05382

PATIENT
  Age: 57 Year
  Sex: Male

DRUGS (1)
  1. POTASSIUM [Suspect]
     Active Substance: POTASSIUM
     Indication: Basedow^s disease
     Dosage: 100 MILLIGRAM, QD
     Route: 048

REACTIONS (1)
  - Iodine allergy [Recovered/Resolved]
